FAERS Safety Report 13749536 (Version 1)
Quarter: 2017Q3

REPORT INFORMATION
  Report Type: Spontaneous
  Country: GB (occurrence: GB)
  Receive Date: 20170713
  Receipt Date: 20170713
  Transmission Date: 20171127
  Serious: Yes (Other)
  Sender: FDA-Public Use
  Company Number: GB-EISAI MEDICAL RESEARCH-EC-2017-029304

PATIENT
  Age: 9 Year
  Sex: Female

DRUGS (2)
  1. RUFINAMIDE [Suspect]
     Active Substance: RUFINAMIDE
     Dosage: DOSE REDUCED (UNSPECIFIED)
     Route: 048
  2. RUFINAMIDE [Suspect]
     Active Substance: RUFINAMIDE
     Indication: EPILEPSY
     Dosage: UNKNOWN
     Route: 048

REACTIONS (1)
  - Dyskinesia [Recovered/Resolved]
